FAERS Safety Report 5309647-1 (Version None)
Quarter: 2007Q2

REPORT INFORMATION
  Report Type: 
  Country: None (occurrence: None)
  Receive Date: 20070427
  Receipt Date: 20060713
  Transmission Date: 20071010
  Serious: No
  Sender: FDA-Public Use
  Company Number: US-GLAXOSMITHKLINE-A0612177A

PATIENT
  Sex: Female

DRUGS (7)
  1. DEXEDRINE [Suspect]
     Indication: NARCOLEPSY
     Dosage: 15MG VARIABLE DOSE
     Route: 048
     Dates: start: 19880101
  2. SYNTHROID [Concomitant]
  3. GINKO [Concomitant]
  4. NUTRIFLEX [Concomitant]
  5. BUMEX [Concomitant]
  6. AMOXICILLIN [Concomitant]
  7. POTASSIUM ACETATE [Concomitant]

REACTIONS (1)
  - OVERDOSE [None]
